FAERS Safety Report 9466712 (Version 1)
Quarter: 2013Q3

REPORT INFORMATION
  Report Type: Spontaneous
  Country: US (occurrence: US)
  Receive Date: 20130820
  Receipt Date: 20130820
  Transmission Date: 20140515
  Serious: No
  Sender: FDA-Public Use
  Company Number: US-TEVA-355225USA

PATIENT
  Sex: Male

DRUGS (3)
  1. FLUCONAZOLE [Suspect]
  2. IPRATROPIUM BROMIDE [Interacting]
  3. ALBUTEROL SULFATE [Interacting]

REACTIONS (3)
  - Vision blurred [Unknown]
  - Photophobia [Unknown]
  - Drug interaction [Unknown]
